FAERS Safety Report 7132408-8 (Version None)
Quarter: 2010Q4

REPORT INFORMATION
  Report Type: 
  Country: None (occurrence: None)
  Receive Date: 20101129
  Receipt Date: 20101129
  Transmission Date: 20110411
  Serious: Yes (Other)
  Sender: FDA-Public Use
  Company Number: None

PATIENT
  Age: 60 Year
  Sex: Female
  Weight: 100 kg

DRUGS (2)
  1. VENLAFAXINE HCL EXTENDED-RELEASE [Suspect]
     Indication: DEPRESSION
     Dosage: 75 MG ONE DAILY ORAL
     Route: 048
     Dates: start: 20101001
  2. EFFEXOR XR [Suspect]

REACTIONS (7)
  - CRYING [None]
  - DEPRESSED MOOD [None]
  - IRRITABILITY [None]
  - MOOD SWINGS [None]
  - PANIC REACTION [None]
  - PRODUCT SUBSTITUTION ISSUE [None]
  - PRURITUS [None]
